FAERS Safety Report 8091629-0 (Version None)
Quarter: 2012Q1

REPORT INFORMATION
  Report Type: 
  Country: None (occurrence: None)
  Receive Date: 20120130
  Receipt Date: 20120130
  Transmission Date: 20120608
  Serious: Yes (Hospitalization)
  Sender: FDA-Public Use
  Company Number: None

PATIENT
  Sex: Female

DRUGS (4)
  1. OXYCODONE 15MG QUALITEST [Suspect]
     Indication: SCOLIOSIS
     Dosage: 1 TABLET EVERY 6HRS PA PO
     Route: 048
     Dates: start: 20101001
  2. OXYCODONE 15MG QUALITEST [Suspect]
     Indication: SURGERY
     Dosage: 1 TABLET EVERY 6HRS PA PO
     Route: 048
     Dates: start: 20101001
  3. OXYCODONE 15MG QUALITEST [Suspect]
     Indication: PAIN
     Dosage: 1 TABLET EVERY 6HRS PA PO
     Route: 048
     Dates: start: 20101001
  4. CARISOPRODOL [Suspect]
     Indication: MUSCLE SPASMS
     Dosage: 1 TABLET 3 TIMES DAILY PO
     Route: 048

REACTIONS (4)
  - HEADACHE [None]
  - PRODUCT SUBSTITUTION ISSUE [None]
  - NAUSEA [None]
  - VOMITING [None]
